FAERS Safety Report 14618662 (Version 1)
Quarter: 2018Q1

REPORT INFORMATION
  Report Type: Spontaneous
  Country: US (occurrence: US)
  Receive Date: 20180309
  Receipt Date: 20180309
  Transmission Date: 20180509
  Serious: Yes (Hospitalization)
  Sender: FDA-Public Use
  Company Number: US-TEVA-2018-US-866117

PATIENT
  Sex: Female

DRUGS (1)
  1. ATORVASTATIN CALCIUM. [Suspect]
     Active Substance: ATORVASTATIN CALCIUM
     Indication: BLOOD CHOLESTEROL INCREASED
     Route: 065

REACTIONS (8)
  - Angina pectoris [Unknown]
  - Constipation [Unknown]
  - Abdominal pain upper [Unknown]
  - Cough [Unknown]
  - Diarrhoea [Unknown]
  - Musculoskeletal pain [Unknown]
  - Pain in jaw [Unknown]
  - Pain in extremity [Unknown]
